FAERS Safety Report 5883722-5 (Version None)
Quarter: 2008Q3

REPORT INFORMATION
  Report Type: 
  Country: None (occurrence: None)
  Receive Date: 20080911
  Receipt Date: 20080905
  Transmission Date: 20090109
  Serious: Yes (Other)
  Sender: FDA-Public Use
  Company Number: 2008SP018355

PATIENT
  Sex: Female

DRUGS (1)
  1. TEMODAR [Suspect]
     Indication: DRUG USE FOR UNKNOWN INDICATION
     Dosage: PO
     Route: 048

REACTIONS (5)
  - ASTHENIA [None]
  - DYSPNOEA [None]
  - OEDEMA [None]
  - PALPITATIONS [None]
  - THROMBOSIS [None]
